FAERS Safety Report 8361250-5 (Version None)
Quarter: 2012Q2

REPORT INFORMATION
  Report Type: 
  Country: None (occurrence: None)
  Receive Date: 20120515
  Receipt Date: 20110727
  Transmission Date: 20120825
  Serious: No
  Sender: FDA-Public Use
  Company Number: US-ALEXION-A201101154

PATIENT
  Sex: Male

DRUGS (13)
  1. SOLIRIS [Suspect]
     Indication: PAROXYSMAL NOCTURNAL HAEMOGLOBINURIA
     Dosage: 900 MG, Q2W
     Route: 042
     Dates: start: 20101113
  2. LOPERAMIDE [Concomitant]
     Dosage: 2 MG, QID
     Route: 048
  3. UROXATRAL [Concomitant]
     Dosage: UNK, 1 HS
     Route: 048
  4. VITAMIN B6 [Concomitant]
     Dosage: UNK, 1 DAILY
     Route: 048
  5. DANAZOL [Concomitant]
     Dosage: 200 MG, TID
     Route: 048
  6. METOPROLOL TARTRATE [Concomitant]
     Dosage: 25 MG, 1/2 ER TABLET DAILY
     Route: 048
  7. FOLIC ACID [Concomitant]
     Dosage: 1 MG, QD
     Route: 048
  8. FUROSEMIDE [Concomitant]
     Dosage: 40 MG, QOD
     Route: 048
  9. POTASSIUM CHLORIDE [Concomitant]
     Dosage: 20 MEQ, QOD
     Route: 048
  10. PRESERVISION LUTEIN EYE VITA.+MIN.SUP.SOFTG. [Concomitant]
     Dosage: UNK, 1-2 TABLETS DAILY
     Route: 048
  11. EUCERIN [Concomitant]
     Dosage: UNK, TID, DERMAL
  12. VITAMIN B-12 [Concomitant]
     Dosage: 25 MCG QOD
     Route: 048
  13. PILOCARPINE [Concomitant]
     Dosage: UNK, 1 DROP IN LEFT EYE DAILY

REACTIONS (1)
  - BLOOD URINE PRESENT [None]
